FAERS Safety Report 25948108 (Version 1)
Quarter: 2025Q4

REPORT INFORMATION
  Report Type: Spontaneous
  Country: US (occurrence: US)
  Receive Date: 20251022
  Receipt Date: 20251022
  Transmission Date: 20260118
  Serious: Yes (Hospitalization)
  Sender: GLAXOSMITHKLINE
  Company Number: US-GSK-US2025134987

PATIENT
  Sex: Female

DRUGS (3)
  1. JEMPERLI [Suspect]
     Active Substance: DOSTARLIMAB-GXLY
     Indication: Endometrial cancer
     Dosage: UNK, 1 CYCLE
  2. Carbo [Concomitant]
     Indication: Product used for unknown indication
     Dosage: UNK, 1 CYCLE
  3. TAXOL [Concomitant]
     Active Substance: PACLITAXEL
     Indication: Product used for unknown indication
     Dosage: UNK, 1 CYCLE

REACTIONS (2)
  - Red blood cell count decreased [Recovering/Resolving]
  - Haemoglobin abnormal [Recovering/Resolving]
